FAERS Safety Report 9022396 (Version 1)
Quarter: 2013Q1

REPORT INFORMATION
  Report Type: Spontaneous
  Country: BE (occurrence: BE)
  Receive Date: 20130118
  Receipt Date: 20130118
  Transmission Date: 20140127
  Serious: Yes (Hospitalization)
  Sender: FDA-Public Use
  Company Number: BE-BAYER-2013-005555

PATIENT
  Age: 75 Year
  Sex: Male

DRUGS (5)
  1. PROFLOX [Suspect]
     Dosage: 400 MG, UNK
     Route: 048
  2. MAREVAN [Suspect]
     Indication: ATRIAL FIBRILLATION
     Dosage: 5 MG, COMPRIMES
  3. SOTALEX [Concomitant]
     Dosage: 1/2 TABLET
  4. LYSOMUCIL [Concomitant]
     Dosage: UNK UNK, TID
  5. BELSAR [OLMESARTAN MEDOXOMIL] [Concomitant]
     Dosage: 40 MG, UNK

REACTIONS (2)
  - Enterocolitis haemorrhagic [None]
  - Drug interaction [None]
